FAERS Safety Report 9162598 (Version 1)
Quarter: 2013Q1

REPORT INFORMATION
  Report Type: Spontaneous
  Country: IT (occurrence: IT)
  Receive Date: 20130314
  Receipt Date: 20130314
  Transmission Date: 20140127
  Serious: Yes (Other)
  Sender: FDA-Public Use
  Company Number: IT-MYLANLABS-2013S1004924

PATIENT
  Age: 41 Year
  Sex: Male

DRUGS (6)
  1. IRINOTECAN [Suspect]
     Indication: COLON CANCER METASTATIC
     Dosage: CYCLIC
     Route: 042
     Dates: start: 20130204, end: 20130204
  2. CALCIUM LEVOFOLINATE [Concomitant]
     Indication: PRODUCT USED FOR UNKNOWN INDICATION
     Dosage: 175 MG POWDER PER SOLUTION PER INFUSION- 1 VIAL
  3. ATROPINE SULFATE [Concomitant]
     Indication: PRODUCT USED FOR UNKNOWN INDICATION
     Dosage: 0,5 MG/ML INJECTION SOLUTION ? 5 VIALS- 1 ML
  4. DEXAMETHASONE SODIUM PHOSPHATE [Concomitant]
     Indication: PRODUCT USED FOR UNKNOWN INDICATION
     Dosage: 8 MG/2 ML  INJECTION SOLUTION ? 1 VIAL- 2 ML
  5. ONDANSETRONE HIKMA [Concomitant]
     Indication: PRODUCT USED FOR UNKNOWN INDICATION
     Dosage: 8 MG/4 ML  INJECTION SOLUTION ? 5 VIALS
  6. ZANTAC [Concomitant]
     Indication: PRODUCT USED FOR UNKNOWN INDICATION
     Dosage: 50 MG/5 ML  INJECTION SOLUTION FOR IV USE ? 10 VIALS

REACTIONS (3)
  - Dysarthria [Recovering/Resolving]
  - Joint stiffness [Recovering/Resolving]
  - Trismus [Recovering/Resolving]
